FAERS Safety Report 10815574 (Version 1)
Quarter: 2015Q1

REPORT INFORMATION
  Report Type: Spontaneous
  Country: BE (occurrence: BE)
  Receive Date: 20150218
  Receipt Date: 20150218
  Transmission Date: 20150721
  Serious: Yes (Disabling)
  Sender: FDA-Public Use
  Company Number: BE-ABBVIE-14P-013-1301405-00

PATIENT
  Age: 48 Year
  Sex: Male

DRUGS (1)
  1. HUMIRA [Suspect]
     Active Substance: ADALIMUMAB
     Indication: PSORIASIS
     Route: 065
     Dates: start: 20101015

REACTIONS (8)
  - Dry skin [Unknown]
  - Paraesthesia [Not Recovered/Not Resolved]
  - Blood creatinine decreased [Unknown]
  - Glomerular filtration rate increased [Unknown]
  - Red blood cell sedimentation rate increased [Unknown]
  - Pruritus [Not Recovered/Not Resolved]
  - Monocyte count increased [Unknown]
  - Low density lipoprotein decreased [Unknown]

NARRATIVE: CASE EVENT DATE: 20141021
